FAERS Safety Report 10317387 (Version 2)
Quarter: 2015Q1

REPORT INFORMATION
  Report Type: Other
  Country: US (occurrence: US)
  Receive Date: 20140719
  Receipt Date: 20150220
  Transmission Date: 20150720
  Serious: Yes (Hospitalization, Other)
  Sender: FDA-Public Use
  Company Number: US-GSKPPD-2014GSK016235

PATIENT
  Sex: Male

DRUGS (7)
  1. LISINOPRIL. [Concomitant]
     Active Substance: LISINOPRIL
  2. COUMADIN [Concomitant]
     Active Substance: WARFARIN SODIUM
  3. LASIX [Concomitant]
     Active Substance: FUROSEMIDE
  4. NITROGLYCERIN. [Concomitant]
     Active Substance: NITROGLYCERIN
     Route: 060
  5. METOLAZONE. [Concomitant]
     Active Substance: METOLAZONE
     Route: 048
  6. AVANDIA [Suspect]
     Active Substance: ROSIGLITAZONE MALEATE
     Indication: DIABETES MELLITUS
     Dosage: AVANDIA WAS NOT LISTED AMONG THE PATIENTS RECORDS REVIEWED.
     Route: 048
  7. COREG [Concomitant]
     Active Substance: CARVEDILOL

REACTIONS (3)
  - Ischaemic cardiomyopathy [Recovered/Resolved]
  - Cardiac failure chronic [Recovered/Resolved]
  - Cardiac failure congestive [Unknown]
